FAERS Safety Report 23982993 (Version 1)
Quarter: 2024Q2

REPORT INFORMATION
  Report Type: Spontaneous
  Country: US (occurrence: US)
  Receive Date: 20240617
  Receipt Date: 20240617
  Transmission Date: 20240717
  Serious: Yes (Hospitalization)
  Sender: FDA-Public Use
  Company Number: US-SAMSUNG BIOEPIS-SB-2024-17505

PATIENT
  Age: 68 Year
  Sex: Female

DRUGS (1)
  1. HADLIMA [Suspect]
     Active Substance: ADALIMUMAB-BWWD
     Indication: Ankylosing spondylitis
     Route: 059

REACTIONS (5)
  - Cardiac valve disease [Recovering/Resolving]
  - Asthenia [Recovering/Resolving]
  - Incontinence [Recovering/Resolving]
  - Hypertension [Recovering/Resolving]
  - Product use issue [Unknown]
